FAERS Safety Report 7792982-5 (Version None)
Quarter: 2011Q4

REPORT INFORMATION
  Report Type: 
  Country: None (occurrence: None)
  Receive Date: 20111003
  Receipt Date: 20110928
  Transmission Date: 20120403
  Serious: Yes (Hospitalization)
  Sender: FDA-Public Use
  Company Number: MY-ABBOTT-11P-101-0858920-00

PATIENT
  Age: 51 Year
  Sex: Male

DRUGS (4)
  1. VALPROATE SODIUM [Suspect]
     Route: 048
     Dates: start: 20110919
  2. VALPROATE SODIUM [Suspect]
     Indication: CONVULSION
     Route: 042
     Dates: start: 20110906, end: 20110914
  3. VALPROATE SODIUM [Suspect]
     Route: 048
     Dates: start: 20110914, end: 20110919
  4. CEFOPERAZONE SODIUM [Suspect]
     Indication: INFECTION
     Dosage: DAILY
     Route: 042
     Dates: start: 20110915

REACTIONS (1)
  - HYPERNATRAEMIA [None]
